FAERS Safety Report 18524547 (Version 1)
Quarter: 2020Q4

REPORT INFORMATION
  Report Type: Other
  Country: CA (occurrence: CA)
  Receive Date: 20201120
  Receipt Date: 20201120
  Transmission Date: 20210114
  Serious: Yes (Other)
  Sender: FDA-Public Use
  Company Number: CA-CELLTRION INC.-2020CA031592

PATIENT

DRUGS (23)
  1. ACETAMINOPHEN. [Concomitant]
     Active Substance: ACETAMINOPHEN
     Indication: PREMEDICATION
     Dosage: 650 MILLIGRAM
     Route: 048
  2. DIPHENHYDRAMINE HYDROCHLORIDE. [Concomitant]
     Active Substance: DIPHENHYDRAMINE HYDROCHLORIDE
     Dosage: 50 MILLIGRAM, TOTAL
     Route: 048
  3. PREDNISONE. [Concomitant]
     Active Substance: PREDNISONE
  4. RITUXIMAB (UNKNOWN) [Suspect]
     Active Substance: RITUXIMAB
     Dosage: 1000 MILLIGRAM,  1 EVERY 15 DAYS
     Route: 042
  5. ACETAMINOPHEN. [Concomitant]
     Active Substance: ACETAMINOPHEN
     Indication: PREMEDICATION
     Dosage: 650 MILLIGRAM, TOTAL
     Route: 048
  6. DIPHENHYDRAMINE HYDROCHLORIDE. [Concomitant]
     Active Substance: DIPHENHYDRAMINE HYDROCHLORIDE
     Dosage: 50 MILLIGRAM
     Route: 048
  7. METHYLPREDNISOLONE. [Concomitant]
     Active Substance: METHYLPREDNISOLONE
     Indication: PREMEDICATION
     Dosage: 100 MILLIGRAM
     Route: 042
  8. METHYLPREDNISOLONE. [Concomitant]
     Active Substance: METHYLPREDNISOLONE
     Dosage: 100 MILLIGRAM, TOTAL
     Route: 042
  9. AZITHROMYCIN ANHYDROUS. [Concomitant]
     Active Substance: AZITHROMYCIN ANHYDROUS
  10. METHOTREXATE. [Concomitant]
     Active Substance: METHOTREXATE
  11. VIT D [Concomitant]
     Active Substance: VITAMIN D NOS
  12. RITUXIMAB (UNKNOWN) [Suspect]
     Active Substance: RITUXIMAB
     Dosage: 750 MILLIGRAM,  1 EVERY 15 DAYS
     Route: 042
  13. DIPHENHYDRAMINE HYDROCHLORIDE. [Concomitant]
     Active Substance: DIPHENHYDRAMINE HYDROCHLORIDE
     Indication: PREMEDICATION
     Dosage: 50 MILLIGRAM
     Route: 048
  14. METHYLPREDNISOLONE. [Concomitant]
     Active Substance: METHYLPREDNISOLONE
     Dosage: 100 MILLIGRAM
     Route: 042
  15. FOLIC ACID. [Concomitant]
     Active Substance: FOLIC ACID
  16. LITHIUM. [Concomitant]
     Active Substance: LITHIUM
  17. TRAMADOL. [Concomitant]
     Active Substance: TRAMADOL
  18. TYLENOL [Concomitant]
     Active Substance: ACETAMINOPHEN
  19. RITUXIMAB (UNKNOWN) [Suspect]
     Active Substance: RITUXIMAB
     Indication: RHEUMATOID ARTHRITIS
     Dosage: 500 MILLIGRAM, 1 EVERY 15 DAYS
     Route: 042
  20. CALCIUM [Concomitant]
     Active Substance: CALCIUM
  21. PLAQUENIL [Concomitant]
     Active Substance: HYDROXYCHLOROQUINE SULFATE
     Indication: RHEUMATOID ARTHRITIS
  22. PREMARIN [Concomitant]
     Active Substance: ESTROGENS, CONJUGATED
  23. TYLENOL EXTRA STRENGTH [Concomitant]
     Active Substance: ACETAMINOPHEN

REACTIONS (22)
  - Off label use [Unknown]
  - Drug hypersensitivity [Not Recovered/Not Resolved]
  - Sinusitis [Not Recovered/Not Resolved]
  - Post procedural swelling [Not Recovered/Not Resolved]
  - Heart rate decreased [Not Recovered/Not Resolved]
  - Blood pressure increased [Not Recovered/Not Resolved]
  - Infusion related reaction [Not Recovered/Not Resolved]
  - Abscess oral [Not Recovered/Not Resolved]
  - Pyrexia [Not Recovered/Not Resolved]
  - Underdose [Unknown]
  - Blood pressure systolic increased [Not Recovered/Not Resolved]
  - Toothache [Not Recovered/Not Resolved]
  - Blister [Not Recovered/Not Resolved]
  - Blood pressure fluctuation [Not Recovered/Not Resolved]
  - Influenza [Not Recovered/Not Resolved]
  - Female reproductive tract disorder [Not Recovered/Not Resolved]
  - Tooth abscess [Not Recovered/Not Resolved]
  - Intentional product use issue [Not Recovered/Not Resolved]
  - Dysphonia [Not Recovered/Not Resolved]
  - Oxygen saturation decreased [Not Recovered/Not Resolved]
  - Osteoarthritis [Not Recovered/Not Resolved]
  - Off label use [Not Recovered/Not Resolved]
